FAERS Safety Report 17292557 (Version 1)
Quarter: 2020Q1

REPORT INFORMATION
  Report Type: Spontaneous
  Country: RU (occurrence: RU)
  Receive Date: 20200121
  Receipt Date: 20200121
  Transmission Date: 20200409
  Serious: Yes (Hospitalization)
  Sender: FDA-Public Use
  Company Number: RU-BAYER-2019-236913

PATIENT
  Age: 59 Year
  Sex: Male

DRUGS (2)
  1. NOVOCAINE [Suspect]
     Active Substance: PROCAINE
     Dosage: UNK
  2. ULTRAVIST [Suspect]
     Active Substance: IOPROMIDE
     Indication: ANGIOCARDIOGRAM
     Dosage: UNK

REACTIONS (1)
  - Urticaria [Recovered/Resolved with Sequelae]
